FAERS Safety Report 5941759-1 (Version None)
Quarter: 2008Q4

REPORT INFORMATION
  Report Type: 
  Country: None (occurrence: None)
  Receive Date: 20081105
  Receipt Date: 20081030
  Transmission Date: 20090506
  Serious: Yes (Other)
  Sender: FDA-Public Use
  Company Number: DE-ABBOTT-08P-062-0480200-00

PATIENT
  Age: 52 Year
  Sex: Female
  Weight: 55 kg

DRUGS (5)
  1. HUMIRA [Suspect]
     Indication: RHEUMATOID ARTHRITIS
     Route: 058
     Dates: start: 20060401, end: 20080613
  2. HUMIRA [Suspect]
     Route: 058
     Dates: start: 20080913
  3. GLUCOCORTICOIDS [Concomitant]
     Indication: RHEUMATOID ARTHRITIS
  4. METHOTREXATE [Concomitant]
     Indication: RHEUMATOID ARTHRITIS
     Dates: start: 20080901, end: 20081001
  5. HCQ/CQ [Concomitant]
     Indication: RHEUMATOID ARTHRITIS
     Dates: start: 20080801

REACTIONS (1)
  - PAIN [None]
